FAERS Safety Report 6831371-4 (Version None)
Quarter: 2010Q3

REPORT INFORMATION
  Report Type: 
  Country: None (occurrence: None)
  Receive Date: 20100712
  Receipt Date: 20100702
  Transmission Date: 20110219
  Serious: Yes (Hospitalization, Other)
  Sender: FDA-Public Use
  Company Number: FR-AMGEN-KDL413172

PATIENT
  Sex: Female
  Weight: 107 kg

DRUGS (7)
  1. NEULASTA [Suspect]
     Indication: CHEMOTHERAPY
     Route: 058
     Dates: start: 20100410, end: 20100410
  2. LEVOTHYROXINE SODIUM [Concomitant]
     Route: 048
  3. ZANIDIP [Concomitant]
     Route: 048
  4. ALDACTONE [Concomitant]
     Route: 048
  5. ADRIAMYCIN PFS [Concomitant]
     Route: 042
     Dates: start: 20100406
  6. HOLOXAN [Concomitant]
     Route: 042
     Dates: start: 20100406
  7. CISPLATIN [Concomitant]
     Route: 042
     Dates: start: 20100406

REACTIONS (17)
  - ACUTE FEBRILE NEUTROPHILIC DERMATOSIS [None]
  - ASTHENIA [None]
  - CHEST PAIN [None]
  - COUGH [None]
  - DYSPNOEA [None]
  - EPISTAXIS [None]
  - HERPES VIRUS INFECTION [None]
  - HYPOKALAEMIA [None]
  - HYPONATRAEMIA [None]
  - INFLAMMATION [None]
  - LIVER FUNCTION TEST ABNORMAL [None]
  - NORMOCHROMIC NORMOCYTIC ANAEMIA [None]
  - PYODERMA GANGRENOSUM [None]
  - RASH [None]
  - RENAL FAILURE ACUTE [None]
  - SKIN NODULE [None]
  - THROMBOCYTOPENIA [None]
